FAERS Safety Report 5408322-2 (Version None)
Quarter: 2007Q3

REPORT INFORMATION
  Report Type: 
  Country: None (occurrence: None)
  Receive Date: 20070808
  Receipt Date: 20070731
  Transmission Date: 20080115
  Serious: Yes (Hospitalization)
  Sender: FDA-Public Use
  Company Number: US-GENENTECH-222902

PATIENT
  Age: 50 Year
  Sex: Female

DRUGS (3)
  1. XOLAIR [Suspect]
     Indication: ASTHMA
     Dosage: 150 MG, UNK
     Route: 058
  2. ZAFIRLUKAST [Concomitant]
     Dosage: 20 MG, BID
     Route: 047
  3. BECLOMETHASONE DIPROPIONATE [Concomitant]
     Dosage: UNK, QD

REACTIONS (1)
  - ANAPHYLACTIC REACTION [None]
